FAERS Safety Report 12420131 (Version 1)
Quarter: 2016Q2

REPORT INFORMATION
  Report Type: Spontaneous
  Country: US (occurrence: US)
  Receive Date: 20160531
  Receipt Date: 20160531
  Transmission Date: 20160815
  Serious: No
  Sender: FDA-Public Use
  Company Number: US-GLAXOSMITHKLINE-US2016068466

PATIENT
  Age: 79 Year
  Sex: Female

DRUGS (6)
  1. FLOVENT DISKUS [Suspect]
     Active Substance: FLUTICASONE PROPIONATE
     Indication: WHEEZING
  2. FLOVENT DISKUS [Suspect]
     Active Substance: FLUTICASONE PROPIONATE
     Indication: BRONCHITIS
     Dosage: 1 PUFF(S), TID
     Route: 055
     Dates: start: 20160505, end: 20160505
  3. PROAIR HFA [Concomitant]
     Active Substance: ALBUTEROL SULFATE
  4. FLOVENT DISKUS [Suspect]
     Active Substance: FLUTICASONE PROPIONATE
     Indication: ATYPICAL PNEUMONIA
     Dosage: 1 PUFF(S), BID
     Route: 055
     Dates: start: 20160506, end: 20160512
  5. BENZONATATE. [Concomitant]
     Active Substance: BENZONATATE
  6. PREDNISONE. [Concomitant]
     Active Substance: PREDNISONE

REACTIONS (6)
  - Tongue disorder [Not Recovered/Not Resolved]
  - Product use issue [Recovered/Resolved]
  - Oropharyngeal pain [Not Recovered/Not Resolved]
  - Drug dose omission [Unknown]
  - Off label use [Recovered/Resolved]
  - Prescribed overdose [Recovered/Resolved]

NARRATIVE: CASE EVENT DATE: 20160505
